FAERS Safety Report 13380819 (Version 1)
Quarter: 2017Q1

REPORT INFORMATION
  Report Type: Spontaneous
  Country: FR (occurrence: FR)
  Receive Date: 20170329
  Receipt Date: 20170329
  Transmission Date: 20170429
  Serious: Yes (Hospitalization, Other)
  Sender: FDA-Public Use
  Company Number: FR-AMGEN-FRASP2017046084

PATIENT
  Age: 70 Year
  Sex: Male

DRUGS (6)
  1. NEUPOGEN [Suspect]
     Active Substance: FILGRASTIM
     Indication: TRANSPLANT
     Dosage: 1 DF, 2 IN 1 DAY
     Route: 042
     Dates: start: 20170119, end: 20170124
  2. MYLOTARG [Concomitant]
     Active Substance: GEMTUZUMAB OZOGAMICIN
  3. ARACYTINE [Concomitant]
     Active Substance: CYTARABINE
  4. IDARUBICIN [Concomitant]
     Active Substance: IDARUBICIN
  5. CYTARABINE. [Concomitant]
     Active Substance: CYTARABINE
  6. DAUNORUBICIN [Concomitant]
     Active Substance: DAUNORUBICIN

REACTIONS (1)
  - Atrial fibrillation [Recovered/Resolved with Sequelae]

NARRATIVE: CASE EVENT DATE: 20170124
